FAERS Safety Report 17639479 (Version 1)
Quarter: 2020Q2

REPORT INFORMATION
  Report Type: Spontaneous
  Country: US (occurrence: US)
  Receive Date: 20200407
  Receipt Date: 20200407
  Transmission Date: 20200713
  Serious: No
  Sender: FDA-Public Use
  Company Number: US-VERTEX PHARMACEUTICALS-2019-012951

PATIENT
  Age: 39 Year
  Sex: Female

DRUGS (1)
  1. TRIKAFTA [Suspect]
     Active Substance: ELEXACAFTOR\IVACAFTOR\TEZACAFTOR
     Indication: CYSTIC FIBROSIS
     Dosage: 100MG ELEXACAFTOR/50MG TEZACAFTOR/75MG IVACAFTOR AND 150MG IVACAFTOR, BID
     Route: 048
     Dates: start: 20191120

REACTIONS (7)
  - Fatigue [Recovered/Resolved]
  - Pyrexia [Recovered/Resolved]
  - Asthenia [Recovered/Resolved]
  - Nasal congestion [Recovered/Resolved]
  - Nasopharyngitis [Not Recovered/Not Resolved]
  - Oropharyngeal pain [Recovered/Resolved]
  - Cough [Recovered/Resolved]

NARRATIVE: CASE EVENT DATE: 2019
